FAERS Safety Report 9423377 (Version 2)
Quarter: 2013Q3

REPORT INFORMATION
  Report Type: Spontaneous
  Country: US (occurrence: US)
  Receive Date: 20130726
  Receipt Date: 20130903
  Transmission Date: 20140515
  Serious: Yes (Hospitalization)
  Sender: FDA-Public Use
  Company Number: US-ABBOTT-13P-163-1121273-00

PATIENT
  Sex: Male
  Weight: 97.16 kg

DRUGS (1)
  1. LUPRON DEPOT [Suspect]
     Indication: PROSTATE CANCER
     Route: 030
     Dates: start: 20130201, end: 20130517

REACTIONS (3)
  - Mental disorder [Recovering/Resolving]
  - Hallucination [Recovering/Resolving]
  - Emotional disorder [Recovering/Resolving]
